FAERS Safety Report 4485852-1 (Version None)
Quarter: 2004Q3

REPORT INFORMATION
  Report Type: 
  Country: None (occurrence: None)
  Receive Date: 20040921
  Receipt Date: 20031002
  Transmission Date: 20050211
  Serious: Yes (Death, Hospitalization)
  Sender: FDA-Public Use
  Company Number: 163-20785-03100127

PATIENT
  Age: 58 Year
  Sex: Female
  Weight: 58 kg

DRUGS (15)
  1. THALOMID [Suspect]
     Indication: MULTIPLE MYELOMA
     Dosage: 400 MG DAILY, ORAL
     Route: 048
     Dates: start: 20030521, end: 20030703
  2. DEXAMETHASONE (DEXAMETHASONES) [Suspect]
     Indication: MULTIPLE MYELOMA
     Dates: start: 20030521
  3. CYTOXAN [Suspect]
     Indication: MULTIPLE MYELOMA
     Dosage: 600 MG, DAILY, INTRAVENOUS
     Route: 042
     Dates: start: 20030619, end: 20030622
  4. ETOPOSIDE [Suspect]
     Indication: MULTIPLE MYELOMA
     Dosage: 60 MG, DAILY, INTRAVENOUS
     Route: 042
     Dates: start: 20030619, end: 20030622
  5. CISPLATIN [Suspect]
     Indication: MULTIPLE MYELOMA
     Dosage: 15 MG, INTRAVENOUS
     Route: 042
     Dates: start: 20030619, end: 20030622
  6. VINCRISTINE [Concomitant]
  7. ADRIAMYCIN PFS [Concomitant]
  8. FORTEO [Concomitant]
  9. CALCIUM (CALCIUM) [Concomitant]
  10. PROCRIT [Concomitant]
  11. PROZAC [Concomitant]
  12. HYDROCODONE (HYDROCODONE) [Concomitant]
  13. ZANTAC [Concomitant]
  14. AREDIA [Concomitant]
  15. COLACE (DOCUSATE SODIUM) [Concomitant]

REACTIONS (7)
  - CARDIOMEGALY [None]
  - DEATH [None]
  - DISEASE PROGRESSION [None]
  - HYPOXIA [None]
  - LUNG INFILTRATION [None]
  - PLEURAL EFFUSION [None]
  - RESPIRATORY FAILURE [None]
